FAERS Safety Report 15918852 (Version 1)
Quarter: 2019Q1

REPORT INFORMATION
  Report Type: Spontaneous
  Country: US (occurrence: US)
  Receive Date: 20190205
  Receipt Date: 20190205
  Transmission Date: 20190417
  Serious: No
  Sender: FDA-Public Use
  Company Number: US-BAYER-2019-021708

PATIENT
  Sex: Female

DRUGS (2)
  1. ESTRADIOL. [Suspect]
     Active Substance: ESTRADIOL
     Route: 062
  2. CLIMARA [Suspect]
     Active Substance: ESTRADIOL
     Route: 062

REACTIONS (2)
  - Therapeutic response unexpected [None]
  - Alopecia [None]
